FAERS Safety Report 12109633 (Version 1)
Quarter: 2016Q1

REPORT INFORMATION
  Report Type: Spontaneous
  Country: US (occurrence: US)
  Receive Date: 20160224
  Receipt Date: 20160224
  Transmission Date: 20160526
  Serious: Yes (Hospitalization, Other)
  Sender: FDA-Public Use
  Company Number: US-GLAXOSMITHKLINE-US2016025729

PATIENT
  Age: 60 Year
  Sex: Male

DRUGS (14)
  1. SYMBICORT [Concomitant]
     Active Substance: BUDESONIDE\FORMOTEROL FUMARATE DIHYDRATE
  2. COMPAZINE [Concomitant]
     Active Substance: PROCHLORPERAZINE MALEATE
  3. GEMZAR [Concomitant]
     Active Substance: GEMCITABINE HYDROCHLORIDE
  4. OXYCODONE [Concomitant]
     Active Substance: OXYCODONE
  5. VENTOLIN HFA [Suspect]
     Active Substance: ALBUTEROL SULFATE
     Indication: CHRONIC OBSTRUCTIVE PULMONARY DISEASE
     Dosage: 1 PUFF(S), PRN
     Dates: start: 2011
  6. ALLEGRA [Concomitant]
     Active Substance: FEXOFENADINE HYDROCHLORIDE
  7. TARCEVA [Concomitant]
     Active Substance: ERLOTINIB HYDROCHLORIDE
  8. VENTOLIN HFA [Suspect]
     Active Substance: ALBUTEROL SULFATE
     Indication: BRONCHITIS CHRONIC
  9. LOMOTIL [Concomitant]
     Active Substance: ATROPINE SULFATE\DIPHENOXYLATE HYDROCHLORIDE
  10. ZENPEP [Concomitant]
     Active Substance: PANCRELIPASE AMYLASE\PANCRELIPASE LIPASE\PANCRELIPASE PROTEASE
  11. BENADRYL [Concomitant]
     Active Substance: DIPHENHYDRAMINE HYDROCHLORIDE
  12. CLARITIN [Concomitant]
     Active Substance: LORATADINE
  13. PEPCID [Concomitant]
     Active Substance: FAMOTIDINE
  14. NOVOLIN [Concomitant]
     Active Substance: INSULIN HUMAN

REACTIONS (4)
  - Cancer surgery [Not Recovered/Not Resolved]
  - Diabetes mellitus [Not Recovered/Not Resolved]
  - Pancreatic carcinoma [Not Recovered/Not Resolved]
  - Cancer pain [Not Recovered/Not Resolved]

NARRATIVE: CASE EVENT DATE: 201405
